FAERS Safety Report 8298728-9 (Version None)
Quarter: 2012Q2

REPORT INFORMATION
  Report Type: 
  Country: None (occurrence: None)
  Receive Date: 20120419
  Receipt Date: 20120416
  Transmission Date: 20120825
  Serious: Yes (Hospitalization)
  Sender: FDA-Public Use
  Company Number: DE-COVIDIEN/TYCO HEALTHCARE/MALLINCKRODT-T201201456

PATIENT
  Sex: Female
  Weight: 100 kg

DRUGS (2)
  1. OPTIRAY 160 [Suspect]
     Indication: COMPUTERISED TOMOGRAM
     Dosage: 95 ML, SINGLE
     Route: 042
     Dates: start: 20120416, end: 20120416
  2. OMEPRAZOLE [Concomitant]

REACTIONS (3)
  - THROAT IRRITATION [None]
  - SNEEZING [None]
  - COUGH [None]
